FAERS Safety Report 4732186-3 (Version None)
Quarter: 2005Q3

REPORT INFORMATION
  Report Type: 
  Country: None (occurrence: None)
  Receive Date: 20050802
  Receipt Date: 20050321
  Transmission Date: 20060218
  Serious: Yes (Hospitalization, Disabling)
  Sender: FDA-Public Use
  Company Number: US-MERCK-0503USA03956

PATIENT
  Age: 48 Year
  Sex: Male
  Weight: 82 kg

DRUGS (3)
  1. VIOXX [Suspect]
     Indication: ARTHROPATHY
     Route: 048
     Dates: start: 20001031, end: 20020304
  2. VIOXX [Suspect]
     Route: 048
     Dates: start: 20000916, end: 20001001
  3. LEVOXYL [Concomitant]
     Indication: THYROID DISORDER
     Route: 065
     Dates: start: 19970808

REACTIONS (10)
  - ARTHROPATHY [None]
  - BLOOD CHOLESTEROL INCREASED [None]
  - CARDIAC MURMUR [None]
  - CARDIAC VALVE DISEASE [None]
  - CEREBROVASCULAR ACCIDENT [None]
  - DEPRESSION [None]
  - DISTURBANCE IN ATTENTION [None]
  - DYSSTASIA [None]
  - HYPERTENSION [None]
  - UPPER LIMB FRACTURE [None]
